FAERS Safety Report 7722385-0 (Version None)
Quarter: 2011Q3

REPORT INFORMATION
  Report Type: 
  Country: None (occurrence: None)
  Receive Date: 20110831
  Receipt Date: 20110823
  Transmission Date: 20111222
  Serious: Yes (Hospitalization, Other)
  Sender: FDA-Public Use
  Company Number: US-ABBOTT-11P-163-0840740-00

PATIENT
  Sex: Female

DRUGS (20)
  1. VITAMIN D [Concomitant]
  2. VERAPAMIL [Concomitant]
     Indication: PRODUCT USED FOR UNKNOWN INDICATION
     Dosage: ER, 1/2 TABLET DAILY
  3. MAGNESIUM CITRATE [Concomitant]
     Indication: PRODUCT USED FOR UNKNOWN INDICATION
  4. CALTRATE PLUS-D [Concomitant]
     Indication: PRODUCT USED FOR UNKNOWN INDICATION
  5. ZOLOFT [Concomitant]
     Indication: PRODUCT USED FOR UNKNOWN INDICATION
  6. HEPARIN [Concomitant]
     Indication: THROMBOSIS PROPHYLAXIS
  7. VITAMIN B-12 [Concomitant]
     Indication: PRODUCT USED FOR UNKNOWN INDICATION
  8. SINEMET [Concomitant]
     Indication: PRODUCT USED FOR UNKNOWN INDICATION
     Dosage: 25/100, ONE DAILY
  9. TRILIPIX [Suspect]
     Indication: PRODUCT USED FOR UNKNOWN INDICATION
  10. MULTI-VITAMIN [Concomitant]
     Indication: PRODUCT USED FOR UNKNOWN INDICATION
  11. MAGNESIUM [Concomitant]
     Indication: PRODUCT USED FOR UNKNOWN INDICATION
  12. PEPCID [Concomitant]
     Indication: PROPHYLAXIS AGAINST GASTROINTESTINAL ULCER
  13. VERAPAMIL [Concomitant]
     Dosage: SR, ONE DAILY
  14. VITAMIN B-12 [Concomitant]
  15. CALCIUM + VITAMIN D [Concomitant]
     Indication: PRODUCT USED FOR UNKNOWN INDICATION
  16. METOPROLOL TARTRATE [Concomitant]
     Indication: PRODUCT USED FOR UNKNOWN INDICATION
  17. VITAMIN D [Concomitant]
     Indication: PRODUCT USED FOR UNKNOWN INDICATION
  18. ASPIRIN [Concomitant]
     Indication: PRODUCT USED FOR UNKNOWN INDICATION
  19. PLAVIX [Concomitant]
     Indication: PRODUCT USED FOR UNKNOWN INDICATION
  20. LOPRESSOR [Concomitant]
     Indication: PRODUCT USED FOR UNKNOWN INDICATION
     Route: 048

REACTIONS (48)
  - HEPATITIS [None]
  - MUSCULAR WEAKNESS [None]
  - HYPOKALAEMIA [None]
  - CERUMEN IMPACTION [None]
  - CONSTIPATION [None]
  - MICTURITION URGENCY [None]
  - ATRIAL FIBRILLATION [None]
  - PIGMENTATION DISORDER [None]
  - ASTHENIA [None]
  - NEUROPATHY PERIPHERAL [None]
  - DRY SKIN [None]
  - MUSCULOSKELETAL STIFFNESS [None]
  - BACK PAIN [None]
  - VENOUS INSUFFICIENCY [None]
  - MYALGIA [None]
  - CYSTITIS [None]
  - FATIGUE [None]
  - HYPOACUSIS [None]
  - NASAL CONGESTION [None]
  - MOBILITY DECREASED [None]
  - THROMBOSIS [None]
  - DYSPNOEA [None]
  - INCREASED TENDENCY TO BRUISE [None]
  - HYPERTENSION [None]
  - ANAEMIA [None]
  - ALOPECIA [None]
  - NECK PAIN [None]
  - HYPOMAGNESAEMIA [None]
  - INSOMNIA [None]
  - JOINT SWELLING [None]
  - TEMPERATURE INTOLERANCE [None]
  - IMPAIRED SELF-CARE [None]
  - HYPERLIPIDAEMIA [None]
  - ELECTROLYTE IMBALANCE [None]
  - PAIN IN EXTREMITY [None]
  - CONJUNCTIVITIS [None]
  - HYPOAESTHESIA [None]
  - PARAESTHESIA [None]
  - VISION BLURRED [None]
  - URINARY INCONTINENCE [None]
  - RHABDOMYOLYSIS [None]
  - FALL [None]
  - NEURALGIA [None]
  - RHINORRHOEA [None]
  - ANKLE OPERATION [None]
  - LEUKOCYTOSIS [None]
  - PRURITUS [None]
  - VITAMIN B12 DEFICIENCY [None]
